FAERS Safety Report 12370075 (Version 2)
Quarter: 2016Q2

REPORT INFORMATION
  Report Type: Spontaneous
  Country: US (occurrence: US)
  Receive Date: 20160516
  Receipt Date: 20160524
  Transmission Date: 20160815
  Serious: Yes (Other)
  Sender: FDA-Public Use
  Company Number: US-ASTRAZENECA-2016SE51183

PATIENT
  Sex: Male

DRUGS (1)
  1. PRILOSEC OTC [Suspect]
     Active Substance: OMEPRAZOLE MAGNESIUM
     Dosage: UNKNOWN, TOOK FOR 3 YEARS
     Route: 048

REACTIONS (3)
  - Malabsorption [Recovered/Resolved]
  - Hand fracture [Recovered/Resolved]
  - Unevaluable event [Recovered/Resolved]
